FAERS Safety Report 8303658-X (Version None)
Quarter: 2012Q2

REPORT INFORMATION
  Report Type: 
  Country: None (occurrence: None)
  Receive Date: 20120423
  Receipt Date: 20120413
  Transmission Date: 20120825
  Serious: Yes (Other)
  Sender: FDA-Public Use
  Company Number: BR-PFIZER INC-2012093481

PATIENT
  Age: 31 Year
  Sex: Female

DRUGS (1)
  1. PRISTIQ [Suspect]
     Dosage: UNK
     Route: 048
     Dates: start: 20120312

REACTIONS (6)
  - NAUSEA [None]
  - MALAISE [None]
  - WITHDRAWAL SYNDROME [None]
  - HEADACHE [None]
  - DEPERSONALISATION [None]
  - DIZZINESS [None]
